FAERS Safety Report 8028894-1 (Version None)
Quarter: 2012Q1

REPORT INFORMATION
  Report Type: 
  Country: None (occurrence: None)
  Receive Date: 20120106
  Receipt Date: 20111226
  Transmission Date: 20120608
  Serious: Yes (Hospitalization)
  Sender: FDA-Public Use
  Company Number: FR-GLAXOSMITHKLINE-B0765520A

PATIENT
  Sex: Female

DRUGS (8)
  1. ISOPTIN [Concomitant]
  2. LEUCOVORIN CALCIUM [Concomitant]
     Dates: start: 20111109
  3. IRINOTECAN HCL [Concomitant]
     Dates: start: 20111109
  4. FLUOROURACIL [Concomitant]
     Dates: start: 20111109, end: 20111109
  5. OXALIPLATIN [Concomitant]
     Dates: start: 20111109, end: 20111109
  6. ZOFRAN [Suspect]
     Indication: PREMEDICATION
     Route: 042
     Dates: start: 20100201, end: 20111109
  7. CAMPTOSAR [Concomitant]
     Dates: start: 20111109
  8. SOLU-MEDROL [Suspect]
     Indication: PREMEDICATION
     Route: 042
     Dates: start: 20100201, end: 20111109

REACTIONS (1)
  - CHILLS [None]
